FAERS Safety Report 14852650 (Version 1)
Quarter: 2018Q2

REPORT INFORMATION
  Report Type: Report from Study
  Country: US (occurrence: US)
  Receive Date: 20180507
  Receipt Date: 20180507
  Transmission Date: 20180711
  Serious: Yes (Other)
  Sender: FDA-Public Use
  Company Number: US-AUROBINDO-AUR-APL-2018-023938

PATIENT
  Age: 18 Year
  Sex: Female

DRUGS (1)
  1. ADENOSINE. [Suspect]
     Active Substance: ADENOSINE
     Indication: VENTRICULAR PRE-EXCITATION
     Dosage: UNK
     Route: 065

REACTIONS (2)
  - Electrocardiogram PR prolongation [Unknown]
  - Atrioventricular block complete [Unknown]
